FAERS Safety Report 6527313-1 (Version None)
Quarter: 2010Q1

REPORT INFORMATION
  Report Type: 
  Country: None (occurrence: None)
  Receive Date: 20100105
  Receipt Date: 20091230
  Transmission Date: 20100710
  Serious: Yes (Other)
  Sender: FDA-Public Use
  Company Number: GXKR2009ES13185

PATIENT
  Age: 52 Year
  Sex: Female

DRUGS (4)
  1. ACETYLSALICYLIC ACID SRT [Suspect]
     Indication: ACUTE CORONARY SYNDROME
     Route: 065
  2. CLOPIDOGREL (NGX) [Interacting]
     Indication: ACUTE CORONARY SYNDROME
     Route: 065
  3. TRANEXAMIC ACID [Concomitant]
     Dosage: 30 MG/KG, UNK
     Route: 065
  4. DEXIBUPROFEN [Concomitant]
     Indication: ACUTE CORONARY SYNDROME
     Dosage: 400 MG, Q12H
     Route: 065

REACTIONS (1)
  - OPERATIVE HAEMORRHAGE [None]
